FAERS Safety Report 23125435 (Version 1)
Quarter: 2023Q4

REPORT INFORMATION
  Report Type: Spontaneous
  Country: IT (occurrence: IT)
  Receive Date: 20231030
  Receipt Date: 20231030
  Transmission Date: 20240109
  Serious: Yes (Other)
  Sender: FDA-Public Use
  Company Number: None

PATIENT
  Age: 59 Year
  Sex: Female
  Weight: 87 kg

DRUGS (15)
  1. PREDNISONE [Suspect]
     Active Substance: PREDNISONE
     Indication: Nephropathy
     Dosage: 75 MILLIGRAM, QD
     Route: 048
     Dates: start: 20220218, end: 20220408
  2. PREDNISONE [Suspect]
     Active Substance: PREDNISONE
     Dosage: 50 MILLIGRAM, QD
     Route: 048
  3. PREDNISONE [Suspect]
     Active Substance: PREDNISONE
     Dosage: 37.5 MILLIGRAM, QD
     Route: 048
  4. PREDNISONE [Suspect]
     Active Substance: PREDNISONE
     Dosage: 25 MILLIGRAM, QD
     Route: 048
  5. PREDNISONE [Suspect]
     Active Substance: PREDNISONE
     Dosage: 5 MILLIGRAM, QD
     Route: 048
  6. PANTOPRAZOLE SODIUM [Concomitant]
     Active Substance: PANTOPRAZOLE SODIUM
     Dosage: 40 MILLIGRAM, QD
     Route: 048
  7. NORVASC [Concomitant]
     Active Substance: AMLODIPINE BESYLATE
     Dosage: 10 MILLIGRAM, QD
     Route: 048
  8. ATORVASTATIN [Concomitant]
     Active Substance: ATORVASTATIN
     Dosage: 20 MILLIGRAM, QD
     Route: 048
  9. BISOPROLOL FUMARATE [Concomitant]
     Active Substance: BISOPROLOL FUMARATE
     Dosage: 1.25 MILLIGRAM, QD
     Route: 048
  10. OSSIGENO [Concomitant]
     Dosage: UNK
     Route: 065
  11. ACLIDINIUM BROMIDE [Concomitant]
     Active Substance: ACLIDINIUM BROMIDE
     Dosage: UNK
     Route: 065
  12. PENTASA [Concomitant]
     Active Substance: MESALAMINE
     Dosage: 1500 MILLIGRAM, BID
     Route: 048
  13. CANRENOATE POTASSIUM [Concomitant]
     Active Substance: CANRENOATE POTASSIUM
     Dosage: 100 MILLIGRAM, QD
     Route: 048
  14. FUROSEMIDE [Concomitant]
     Active Substance: FUROSEMIDE
     Dosage: 25 MILLIGRAM, BID
     Route: 048
  15. ENOXAPARIN SODIUM [Concomitant]
     Active Substance: ENOXAPARIN SODIUM
     Dosage: 4000 INTERNATIONAL UNIT, QD
     Route: 058

REACTIONS (5)
  - Type 1 diabetes mellitus [Not Recovered/Not Resolved]
  - Hypernatraemia [Recovered/Resolved]
  - Mood altered [Recovered/Resolved]
  - Insomnia [Recovered/Resolved]
  - Fluid retention [Recovered/Resolved]

NARRATIVE: CASE EVENT DATE: 20230301
